FAERS Safety Report 8814619 (Version 2)
Quarter: 2012Q4

REPORT INFORMATION
  Report Type: Report from Study
  Country: DE (occurrence: DE)
  Receive Date: 20120928
  Receipt Date: 20121012
  Transmission Date: 20130627
  Serious: Yes (Other)
  Sender: FDA-Public Use
  Company Number: DE-SANOFI-AVENTIS-2012SA071026

PATIENT
  Age: 82 Year
  Sex: Male
  Weight: 90 kg

DRUGS (7)
  1. MULTAQ [Suspect]
     Indication: PAROXYSMAL ATRIAL FIBRILLATION
     Route: 048
     Dates: start: 20120605, end: 20120830
  2. MULTAQ [Suspect]
     Indication: RECURRENT ATRIAL FIBRILLATION
     Route: 048
     Dates: start: 20120605, end: 20120830
  3. FUROSEMIDE [Concomitant]
     Indication: DRUG USE FOR UNKNOWN INDICATION
  4. BISOPROLOL [Concomitant]
     Indication: DRUG USE FOR UNKNOWN INDICATION
  5. IBUPROFEN [Concomitant]
     Indication: DRUG USE FOR UNKNOWN INDICATION
  6. SERENOA REPENS [Concomitant]
     Indication: DRUG USE FOR UNKNOWN INDICATION
  7. PLATELET AGGREGATION INHIBITORS [Concomitant]
     Indication: ANTICOAGULANT THERAPY

REACTIONS (4)
  - Atrial fibrillation [Unknown]
  - Drug ineffective [Unknown]
  - Atrial fibrillation [Unknown]
  - Drug ineffective [Unknown]
